FAERS Safety Report 9686566 (Version 1)
Quarter: 2013Q4

REPORT INFORMATION
  Report Type: Spontaneous
  Country: US (occurrence: US)
  Receive Date: 20131113
  Receipt Date: 20131113
  Transmission Date: 20140711
  Serious: No
  Sender: FDA-Public Use
  Company Number: US-ENDO PHARMACEUTICALS INC.-TRAZ20110007

PATIENT
  Age: 61 Year
  Sex: Female

DRUGS (1)
  1. TRAZODONE HYDROCHLORIDE TABLETS 50MG [Suspect]
     Indication: INSOMNIA
     Route: 048
     Dates: start: 20110701

REACTIONS (4)
  - Sleep disorder [Recovered/Resolved]
  - Drug ineffective for unapproved indication [Recovered/Resolved]
  - Abnormal dreams [Recovered/Resolved]
  - Fatigue [Recovered/Resolved]
